FAERS Safety Report 11394959 (Version 1)
Quarter: 2015Q3

REPORT INFORMATION
  Report Type: Spontaneous
  Country: US (occurrence: US)
  Receive Date: 20150819
  Receipt Date: 20150819
  Transmission Date: 20151125
  Serious: Yes (Hospitalization, Other)
  Sender: FDA-Public Use
  Company Number: US-ABBVIE-15P-163-1444082-00

PATIENT
  Sex: Female
  Weight: 83 kg

DRUGS (11)
  1. OMEPRAZOLE. [Concomitant]
     Active Substance: OMEPRAZOLE
     Indication: GASTROOESOPHAGEAL REFLUX DISEASE
  2. DOMPERIDONE [Concomitant]
     Active Substance: DOMPERIDONE
     Indication: GASTRIC DISORDER
     Dosage: 8 PILLS FOR 20 YEARS
  3. LACTULOSE. [Suspect]
     Active Substance: LACTULOSE
     Dosage: TABLESPOONS, INCREASED DOSE
     Route: 065
  4. MINERAL OIL. [Suspect]
     Active Substance: MINERAL OIL
     Indication: GASTROINTESTINAL DISORDER
     Dosage: TABLESPOONS
     Route: 065
  5. TYLENOL WITH CODEINE [Suspect]
     Active Substance: ACETAMINOPHEN\CODEINE PHOSPHATE
     Indication: DENTAL CARE
     Route: 065
  6. LACTULOSE. [Suspect]
     Active Substance: LACTULOSE
     Indication: GASTROINTESTINAL DISORDER
     Dosage: TABLESPOONS
     Route: 065
  7. MINERAL OIL. [Suspect]
     Active Substance: MINERAL OIL
     Dosage: TABLESPOONS, INCREASED DOSE
     Route: 065
  8. METAMUCIL [Concomitant]
     Active Substance: PLANTAGO SEED
     Indication: GASTROINTESTINAL DISORDER
     Dosage: 1 LEVEL TABLESPOON FULL
  9. SYNTHROID [Suspect]
     Active Substance: LEVOTHYROXINE SODIUM
     Indication: HYPOTHYROIDISM
     Route: 065
  10. CALTRATE VITAMINE D3 [Suspect]
     Active Substance: CALCIUM CARBONATE\VITAMIN D
     Indication: SPINAL FRACTURE
     Route: 048
     Dates: start: 201507
  11. CYMBALTA [Suspect]
     Active Substance: DULOXETINE HYDROCHLORIDE
     Indication: PAIN
     Dosage: AT BEDTIME, FOR ONE WEEK
     Route: 065
     Dates: start: 201507

REACTIONS (11)
  - Drug dose omission [Unknown]
  - Coronary artery bypass [Unknown]
  - Myelodysplastic syndrome [Recovered/Resolved]
  - Myelodysplastic syndrome [Unknown]
  - Pain [Unknown]
  - Intestinal obstruction [Not Recovered/Not Resolved]
  - Abdominal distension [Not Recovered/Not Resolved]
  - Gastrointestinal disorder [Not Recovered/Not Resolved]
  - Intestinal obstruction [Unknown]
  - Constipation [Not Recovered/Not Resolved]
  - Gastrointestinal disorder [Recovered/Resolved]

NARRATIVE: CASE EVENT DATE: 2000
